FAERS Safety Report 21765622 (Version 1)
Quarter: 2022Q4

REPORT INFORMATION
  Report Type: Spontaneous
  Country: US (occurrence: US)
  Receive Date: 20221222
  Receipt Date: 20221222
  Transmission Date: 20230112
  Serious: Yes (Hospitalization)
  Sender: FDA-Public Use
  Company Number: US-MYLANLABS-2022M1140487

PATIENT
  Age: 63 Year
  Sex: Male

DRUGS (4)
  1. FOMEPIZOLE [Suspect]
     Active Substance: FOMEPIZOLE
     Indication: Alcohol poisoning
     Dosage: UNK
     Route: 065
  2. THIAMINE [Suspect]
     Active Substance: THIAMINE
     Indication: Alcohol poisoning
     Dosage: UNK
     Route: 065
  3. PYRIDOXINE [Suspect]
     Active Substance: PYRIDOXINE
     Indication: Alcohol poisoning
     Dosage: UNK
     Route: 065
  4. FOLIC ACID [Suspect]
     Active Substance: FOLIC ACID
     Indication: Alcohol poisoning
     Dosage: UNK
     Route: 065

REACTIONS (1)
  - Drug ineffective [Unknown]
